FAERS Safety Report 25667279 (Version 1)
Quarter: 2025Q3

REPORT INFORMATION
  Report Type: Spontaneous
  Country: US (occurrence: US)
  Receive Date: 20250811
  Receipt Date: 20250811
  Transmission Date: 20251021
  Serious: No
  Sender: GALDERMA
  Company Number: US-GALDERMA-US2025012325

PATIENT

DRUGS (1)
  1. NEMLUVIO [Suspect]
     Active Substance: NEMOLIZUMAB-ILTO
     Indication: Notalgia paraesthetica
     Route: 058
     Dates: start: 20250709, end: 20250709

REACTIONS (4)
  - Pruritus [Recovering/Resolving]
  - Intentional product use issue [Recovered/Resolved]
  - Device breakage [Recovered/Resolved]
  - Incorrect dose administered [Recovered/Resolved]

NARRATIVE: CASE EVENT DATE: 20250701
